FAERS Safety Report 16882915 (Version 1)
Quarter: 2019Q4

REPORT INFORMATION
  Report Type: Spontaneous
  Country: US (occurrence: US)
  Receive Date: 20191004
  Receipt Date: 20191004
  Transmission Date: 20200122
  Serious: No
  Sender: FDA-Public Use
  Company Number: US-ASTRAZENECA-2019SF27355

PATIENT
  Age: 1021 Month
  Sex: Female
  Weight: 62.1 kg

DRUGS (4)
  1. SYMBICORT [Suspect]
     Active Substance: BUDESONIDE\FORMOTEROL FUMARATE DIHYDRATE
     Indication: ASTHMA
     Dosage: 160 2 PUFFS TWICE A DAY
     Route: 055
     Dates: start: 2019, end: 2019
  2. SYMBICORT [Suspect]
     Active Substance: BUDESONIDE\FORMOTEROL FUMARATE DIHYDRATE
     Indication: ASTHMA
     Dosage: 1 PUFFS TWICE A DAY
     Route: 055
  3. PULMICORT TURBUHALER [Suspect]
     Active Substance: BUDESONIDE
     Indication: ASTHMA
     Dosage: TWO TIMES A DAY
     Route: 055
     Dates: end: 2019
  4. FASENRA [Suspect]
     Active Substance: BENRALIZUMAB
     Indication: ASTHMA
     Dosage: EVERY 4 WEEKS FOR THE FIRST 3 DOSES, THEN EVERY 8 WEEKS THERE AFTER
     Route: 058
     Dates: start: 201905

REACTIONS (11)
  - Haemorrhage [Unknown]
  - Secretion discharge [Unknown]
  - Nausea [Unknown]
  - Rash [Unknown]
  - Skin mass [Unknown]
  - Intentional product misuse [Unknown]
  - Eosinophil count increased [Unknown]
  - Skin discolouration [Unknown]
  - Contusion [Unknown]
  - Malaise [Unknown]
  - Scratch [Unknown]

NARRATIVE: CASE EVENT DATE: 201908
